FAERS Safety Report 23390679 (Version 2)
Quarter: 2025Q2

REPORT INFORMATION
  Report Type: Spontaneous
  Country: US (occurrence: US)
  Receive Date: 20240111
  Receipt Date: 20250627
  Transmission Date: 20250717
  Serious: Yes (Other)
  Sender: AMGEN
  Company Number: US-AMGEN-USASP2024003963

PATIENT
  Age: 72 Year
  Sex: Female

DRUGS (1)
  1. TAVNEOS [Suspect]
     Active Substance: AVACOPAN
     Indication: Product used for unknown indication
     Dosage: 30 MILLIGRAM, BID (TAKE 3 CAPSULES (30 MG) BY MOUTH TWICE DAILY WITH FOOD)
     Route: 048

REACTIONS (13)
  - Kidney infection [Unknown]
  - Pulmonary congestion [Unknown]
  - Asthma [Unknown]
  - Chronic obstructive pulmonary disease [Unknown]
  - Abdominal discomfort [Unknown]
  - Urinary tract infection [Unknown]
  - Pain in extremity [Unknown]
  - Diarrhoea [Unknown]
  - Anxiety [Unknown]
  - Thyroid disorder [Unknown]
  - Sleep disorder [Unknown]
  - Multiple allergies [Unknown]
  - Skin mass [Unknown]

NARRATIVE: CASE EVENT DATE: 20231201
